FAERS Safety Report 16276397 (Version 4)
Quarter: 2019Q2

REPORT INFORMATION
  Report Type: Report from Study
  Country: CA (occurrence: CA)
  Receive Date: 20190506
  Receipt Date: 20190521
  Transmission Date: 20190711
  Serious: Yes (Other)
  Sender: FDA-Public Use
  Company Number: CA-PFIZER INC-2019192393

PATIENT
  Age: 35 Year
  Sex: Male
  Weight: 54.42 kg

DRUGS (6)
  1. PREDNISONE. [Concomitant]
     Active Substance: PREDNISONE
     Dosage: UNK
     Dates: start: 2010
  2. MEZAVANT [Concomitant]
     Active Substance: MESALAMINE
     Dosage: UNK, 1X/DAY
     Dates: start: 2007
  3. ENTYVIO [Suspect]
     Active Substance: VEDOLIZUMAB
     Indication: CROHN^S DISEASE
     Dosage: 300 MG, UNK
     Route: 042
     Dates: start: 20160804
  4. PANTOLOC [Suspect]
     Active Substance: PANTOPRAZOLE SODIUM
     Dosage: UNK
     Route: 065
     Dates: start: 20160401
  5. ENTYVIO [Suspect]
     Active Substance: VEDOLIZUMAB
     Dosage: 300 MG, UNK
     Route: 042
     Dates: start: 20190425
  6. ENTYVIO [Suspect]
     Active Substance: VEDOLIZUMAB
     Dosage: 300 MG, UNK
     Route: 042
     Dates: end: 20180719

REACTIONS (5)
  - Rhinorrhoea [Not Recovered/Not Resolved]
  - Pyrexia [Recovered/Resolved]
  - Viral infection [Unknown]
  - Dry throat [Not Recovered/Not Resolved]
  - Nasal congestion [Unknown]

NARRATIVE: CASE EVENT DATE: 20190427
